FAERS Safety Report 7483732-0 (Version None)
Quarter: 2011Q2

REPORT INFORMATION
  Report Type: 
  Country: None (occurrence: None)
  Receive Date: 20110517
  Receipt Date: 20110504
  Transmission Date: 20111010
  Serious: Yes (Other)
  Sender: FDA-Public Use
  Company Number: PHRM2007FR02399

PATIENT
  Sex: Female

DRUGS (16)
  1. VITAMIN B-12 [Concomitant]
     Dosage: 2 MG, UNK
  2. BI MISSILOR [Concomitant]
     Dosage: UNK
     Dates: start: 20061214
  3. ZOMETA [Suspect]
     Indication: COMPLEX REGIONAL PAIN SYNDROME
     Dosage: UNK
     Dates: start: 20060330
  4. VITAMIN C [Concomitant]
  5. HYDROGEN PEROXIDE SOLUTION [Concomitant]
  6. LYRICA [Concomitant]
     Dosage: 75 MG, TID
  7. ELUDRIL [Concomitant]
  8. PREXIDINE [Concomitant]
  9. PYOSTACINE [Concomitant]
  10. ZOMETA [Suspect]
     Dosage: UNK
     Dates: start: 20060428
  11. ZOMETA [Suspect]
     Dosage: UNK
     Dates: start: 20060901
  12. BROMAZEPAM [Concomitant]
  13. ZOMETA [Suspect]
     Dosage: UNK
     Dates: start: 20060725
  14. ZOMETA [Suspect]
     Dosage: UNK
     Dates: start: 20060602
  15. ZOMETA [Suspect]
     Dosage: UNK
     Dates: start: 20060630
  16. BI MISSILOR [Concomitant]
     Dosage: UNK
     Dates: start: 20061117

REACTIONS (34)
  - FEELING ABNORMAL [None]
  - JAW DISORDER [None]
  - TOOTH FRACTURE [None]
  - NEURALGIA [None]
  - MAJOR DEPRESSION [None]
  - ARTHRALGIA [None]
  - TOOTH INFECTION [None]
  - PAIN IN JAW [None]
  - HYPOGLYCAEMIA [None]
  - EXCESSIVE GRANULATION TISSUE [None]
  - RESORPTION BONE INCREASED [None]
  - IMPLANT SITE PAIN [None]
  - MALOCCLUSION [None]
  - PAIN IN EXTREMITY [None]
  - PURULENT DISCHARGE [None]
  - IMPAIRED HEALING [None]
  - DRUG INEFFECTIVE [None]
  - NIGHTMARE [None]
  - OSTEOMYELITIS [None]
  - DYSARTHRIA [None]
  - EXPOSED BONE IN JAW [None]
  - TOOTH LOSS [None]
  - OSTEOARTHRITIS [None]
  - NASAL DISORDER [None]
  - PHARYNGEAL DISORDER [None]
  - NAUSEA [None]
  - DEVICE FAILURE [None]
  - ORAL PAIN [None]
  - PERIARTHRITIS [None]
  - EAR DISORDER [None]
  - BONE LOSS [None]
  - OSTEONECROSIS OF JAW [None]
  - GINGIVAL PAIN [None]
  - GINGIVAL INFECTION [None]
